FAERS Safety Report 10048511 (Version 1)
Quarter: 2014Q1

REPORT INFORMATION
  Report Type: Report from Study
  Country: DE (occurrence: DE)
  Receive Date: 20140331
  Receipt Date: 20140331
  Transmission Date: 20141002
  Serious: Yes (Other)
  Sender: FDA-Public Use
  Company Number: DE-BRISTOL-MYERS SQUIBB COMPANY-20557286

PATIENT
  Sex: Male

DRUGS (1)
  1. YERVOY [Suspect]
     Indication: METASTATIC MALIGNANT MELANOMA

REACTIONS (4)
  - General physical health deterioration [Unknown]
  - Diarrhoea haemorrhagic [Unknown]
  - Weight decreased [Unknown]
  - Staphylococcal bacteraemia [Unknown]
